FAERS Safety Report 25207184 (Version 2)
Quarter: 2025Q2

REPORT INFORMATION
  Report Type: Report from Study
  Country: US (occurrence: US)
  Receive Date: 20250417
  Receipt Date: 20250609
  Transmission Date: 20250716
  Serious: No
  Sender: SUNOVION
  Company Number: US-SUMITOMO PHARMA SWITZERLAND GMBH-2025SPA003347

PATIENT

DRUGS (31)
  1. ORGOVYX [Suspect]
     Active Substance: RELUGOLIX
     Indication: Prostate cancer
     Dosage: 360 MG, SINGLE
     Route: 048
     Dates: start: 20250218, end: 20250218
  2. ORGOVYX [Suspect]
     Active Substance: RELUGOLIX
     Dosage: 120 MG, QD
     Route: 048
     Dates: start: 20250219
  3. DOCUSATE SODIUM [Concomitant]
     Active Substance: DOCUSATE SODIUM
     Route: 048
  4. FOLIC ACID [Concomitant]
     Active Substance: FOLIC ACID
     Route: 048
  5. HYDROCODONE BITARTRATE AND ACETAMINOPHEN [Concomitant]
     Active Substance: ACETAMINOPHEN\HYDROCODONE BITARTRATE
     Route: 048
  6. HYOSCYAMINE SULFATE [Concomitant]
     Active Substance: HYOSCYAMINE SULFATE
     Route: 048
  7. IBUPROFEN [Concomitant]
     Active Substance: IBUPROFEN
     Route: 048
  8. JARDIANCE [Concomitant]
     Active Substance: EMPAGLIFLOZIN
     Route: 048
  9. KLOR-CON M20 [Concomitant]
     Active Substance: POTASSIUM CHLORIDE
     Route: 048
  10. LEVOFLOXACIN [Concomitant]
     Active Substance: LEVOFLOXACIN
     Route: 048
  11. LISINOPRIL [Concomitant]
     Active Substance: LISINOPRIL
     Route: 048
  12. LORAZEPAM [Concomitant]
     Active Substance: LORAZEPAM
     Route: 048
  13. MELOXICAM [Concomitant]
     Active Substance: MELOXICAM
     Route: 048
  14. METFORMIN HYDROCHLORIDE [Concomitant]
     Active Substance: METFORMIN HYDROCHLORIDE
     Route: 048
  15. METHYLPREDNISOLONE [Concomitant]
     Active Substance: METHYLPREDNISOLONE
     Route: 048
  16. MUPIROCIN [Concomitant]
     Active Substance: MUPIROCIN
     Route: 065
  17. ONDANSETRON HYDROCHLORIDE [Concomitant]
     Active Substance: ONDANSETRON HYDROCHLORIDE
     Route: 048
  18. PANTOPRAZOLE SODIUM [Concomitant]
     Active Substance: PANTOPRAZOLE SODIUM
     Route: 048
  19. QUETIAPINE FUMARATE [Concomitant]
     Active Substance: QUETIAPINE FUMARATE
     Route: 048
  20. ROSUVASTATIN CALCIUM [Concomitant]
     Active Substance: ROSUVASTATIN CALCIUM
     Route: 048
  21. TAMSULOSIN HYDROCHLORIDE [Concomitant]
     Active Substance: TAMSULOSIN HYDROCHLORIDE
     Route: 048
  22. TRAMADOL HCL [Concomitant]
     Active Substance: TRAMADOL HYDROCHLORIDE
     Route: 048
  23. AMOXICILLIN [Concomitant]
     Active Substance: AMOXICILLIN
     Route: 048
  24. CARVEDILOL [Concomitant]
     Active Substance: CARVEDILOL
     Route: 048
  25. CEPHALEXIN [Concomitant]
     Active Substance: CEPHALEXIN
     Route: 048
  26. CITALOPRAM HYDROBROMIDE [Concomitant]
     Active Substance: CITALOPRAM HYDROBROMIDE
     Route: 048
  27. CONSTULOSE [Concomitant]
     Active Substance: LACTULOSE
     Route: 048
  28. CYCLOBENZAPRINE HYDROCHLORIDE [Concomitant]
     Active Substance: CYCLOBENZAPRINE HYDROCHLORIDE
     Route: 048
  29. DIAZEPAM [Concomitant]
     Active Substance: DIAZEPAM
     Route: 048
  30. NORCO [Concomitant]
     Active Substance: ACETAMINOPHEN\HYDROCODONE BITARTRATE
     Route: 065
  31. XIFAXAN [Concomitant]
     Active Substance: RIFAXIMIN
     Route: 065

REACTIONS (3)
  - Feeling cold [Unknown]
  - Night sweats [Unknown]
  - Hot flush [Unknown]
